FAERS Safety Report 17043784 (Version 1)
Quarter: 2019Q4

REPORT INFORMATION
  Report Type: Spontaneous
  Country: TR (occurrence: TR)
  Receive Date: 20191118
  Receipt Date: 20191118
  Transmission Date: 20200122
  Serious: Yes (Hospitalization, Other)
  Sender: FDA-Public Use
  Company Number: TR-PFIZER INC-2019484230

PATIENT
  Sex: Female

DRUGS (2)
  1. IMMUNOGLOBULIN HUMAN [Concomitant]
     Active Substance: HUMAN IMMUNOGLOBULIN G
     Indication: PEMPHIGUS
     Dosage: UNK
  2. METHYLPREDNISOLONE ACETATE. [Suspect]
     Active Substance: METHYLPREDNISOLONE ACETATE
     Indication: PEMPHIGUS
     Dosage: UNK (RANGING BETWEEN 0.5 AND 1 MG/KG/DAILY)

REACTIONS (4)
  - Osteoporosis [Unknown]
  - Treatment failure [Unknown]
  - Obesity [Unknown]
  - Cushingoid [Unknown]
